FAERS Safety Report 12916339 (Version 1)
Quarter: 2016Q4

REPORT INFORMATION
  Report Type: Spontaneous
  Country: US (occurrence: US)
  Receive Date: 20161107
  Receipt Date: 20161107
  Transmission Date: 20170207
  Serious: Yes (Disabling, Other)
  Sender: FDA-Public Use
  Company Number: None

PATIENT
  Age: 53 Year
  Sex: Female
  Weight: 79.83 kg

DRUGS (1)
  1. SEPTOCAINE [Suspect]
     Active Substance: ARTICAINE HYDROCHLORIDE\EPINEPHRINE BITARTRATE
     Indication: TOOTH EXTRACTION
     Dosage: SEPTOCAINE/ARTICAINE - FOR (DURING) DENTAL EXTRACTION

REACTIONS (38)
  - Inadequate analgesia [None]
  - Drooling [None]
  - Dysphagia [None]
  - Headache [None]
  - Tongue biting [None]
  - Glossodynia [None]
  - Tooth fracture [None]
  - Victim of crime [None]
  - Quality of life decreased [None]
  - Ear pain [None]
  - Pain in jaw [None]
  - Gastrointestinal disorder [None]
  - Hyperchlorhydria [None]
  - Disturbance in attention [None]
  - Paraesthesia oral [None]
  - Screaming [None]
  - Syncope [None]
  - Ageusia [None]
  - Anxiety [None]
  - Anger [None]
  - Dizziness [None]
  - Loss of consciousness [None]
  - Lymphoma [None]
  - Frustration tolerance decreased [None]
  - Procedural complication [None]
  - Feeling cold [None]
  - Chronic cheek biting [None]
  - Drug ineffective [None]
  - Hypoaesthesia oral [None]
  - Weight decreased [None]
  - Post-traumatic stress disorder [None]
  - Depression [None]
  - Vth nerve injury [None]
  - Diplopia [None]
  - Nerve injury [None]
  - Skin hypertrophy [None]
  - Dysphonia [None]
  - Legal problem [None]

NARRATIVE: CASE EVENT DATE: 20140722
